APPROVED DRUG PRODUCT: DIMETHYL FUMARATE
Active Ingredient: DIMETHYL FUMARATE
Strength: 240MG
Dosage Form/Route: CAPSULE, DELAYED RELEASE;ORAL
Application: A210531 | Product #002 | TE Code: AB
Applicant: MYLAN PHARMACEUTICALS INC
Approved: Aug 17, 2020 | RLD: No | RS: No | Type: RX